FAERS Safety Report 11231256 (Version 1)
Quarter: 2015Q3

REPORT INFORMATION
  Report Type: Spontaneous
  Country: EC (occurrence: EC)
  Receive Date: 20150701
  Receipt Date: 20150701
  Transmission Date: 20151125
  Serious: Yes (Other)
  Sender: FDA-Public Use
  Company Number: EC-PFIZER INC-2015212925

PATIENT
  Age: 67 Year
  Sex: Female

DRUGS (2)
  1. NEURONTIN [Suspect]
     Active Substance: GABAPENTIN
     Indication: PAIN
     Dosage: 2 OR 3 TABLETS, DAILY
     Dates: start: 2010
  2. NEURONTIN [Suspect]
     Active Substance: GABAPENTIN
     Indication: SPINAL OPERATION

REACTIONS (1)
  - Spinal disorder [Unknown]
